FAERS Safety Report 22684082 (Version 2)
Quarter: 2023Q4

REPORT INFORMATION
  Report Type: Spontaneous
  Country: US (occurrence: US)
  Receive Date: 20230709
  Receipt Date: 20231016
  Transmission Date: 20240109
  Serious: No
  Sender: FDA-Public Use
  Company Number: US-Ipsen Biopharmaceuticals, Inc.-2023-16025

PATIENT
  Age: 53 Year
  Sex: Female
  Weight: 52.7 kg

DRUGS (2)
  1. SOMATULINE DEPOT [Suspect]
     Active Substance: LANREOTIDE ACETATE
     Indication: Acromegaly
     Route: 058
     Dates: start: 20180410
  2. RINVOQ [Concomitant]
     Active Substance: UPADACITINIB
     Dosage: ER TABLET

REACTIONS (4)
  - Disease progression [Unknown]
  - Loss of personal independence in daily activities [Unknown]
  - Pain [Unknown]
  - Product dose omission issue [Unknown]
